FAERS Safety Report 20527689 (Version 1)
Quarter: 2022Q1

REPORT INFORMATION
  Report Type: Spontaneous
  Country: US (occurrence: None)
  Receive Date: 20220228
  Receipt Date: 20220228
  Transmission Date: 20220423
  Serious: Yes (Hospitalization)
  Sender: FDA-Public Use
  Company Number: None

PATIENT
  Age: 37 Year
  Sex: Female

DRUGS (8)
  1. STELARA [Suspect]
     Active Substance: USTEKINUMAB
     Indication: Crohn^s disease
     Dosage: OTHER FREQUENCY : EVERY 8 WEEKS;?
     Route: 058
  2. CETIRIZINE HCL [Concomitant]
     Active Substance: CETIRIZINE HYDROCHLORIDE
  3. CYANOCOBALAM INJ 1000MCG [Concomitant]
  4. PEPCID AC TAB 20MG [Concomitant]
  5. PREDNISONE [Concomitant]
     Active Substance: PREDNISONE
  6. PRILOSEC OTC TAB 20MG [Concomitant]
  7. VITAMIN C CHW 500MG [Concomitant]
  8. VITAMIN D CAP 50000UNT [Concomitant]

REACTIONS (5)
  - Crohn^s disease [None]
  - Diarrhoea [None]
  - Abdominal pain [None]
  - Weight fluctuation [None]
  - Drug ineffective [None]

NARRATIVE: CASE EVENT DATE: 20220224
